FAERS Safety Report 8289264-4 (Version None)
Quarter: 2012Q2

REPORT INFORMATION
  Report Type: 
  Country: None (occurrence: None)
  Receive Date: 20120417
  Receipt Date: 20120403
  Transmission Date: 20120825
  Serious: Yes (Hospitalization)
  Sender: FDA-Public Use
  Company Number: US-JNJFOC-20120402482

PATIENT
  Age: 52 Year
  Sex: Female

DRUGS (1)
  1. INFLIXIMAB, RECOMBINANT [Suspect]
     Indication: RHEUMATOID ARTHRITIS
     Dosage: LAST DOSE 8 WEEKS PRIOR TO ADMISSION
     Route: 042
     Dates: start: 20070101

REACTIONS (1)
  - LUPUS-LIKE SYNDROME [None]
